FAERS Safety Report 25244159 (Version 4)
Quarter: 2025Q2

REPORT INFORMATION
  Report Type: Spontaneous
  Country: US (occurrence: US)
  Receive Date: 20250428
  Receipt Date: 20250519
  Transmission Date: 20250717
  Serious: No
  Sender: AMGEN
  Company Number: US-AMGEN-USASP2025080590

PATIENT
  Age: 79 Year
  Sex: Female

DRUGS (2)
  1. IMLYGIC [Suspect]
     Active Substance: TALIMOGENE LAHERPAREPVEC
     Indication: Product used for unknown indication
     Route: 065
     Dates: start: 20240320
  2. IPILIMUMAB [Concomitant]
     Active Substance: IPILIMUMAB
     Indication: Immunosuppressant drug therapy
     Dates: start: 20250130, end: 20250403

REACTIONS (1)
  - Herpes zoster [Unknown]

NARRATIVE: CASE EVENT DATE: 20250424
